FAERS Safety Report 7363725-4 (Version None)
Quarter: 2011Q1

REPORT INFORMATION
  Report Type: 
  Country: None (occurrence: None)
  Receive Date: 20110321
  Receipt Date: 20110311
  Transmission Date: 20110831
  Serious: Yes (Hospitalization, Other)
  Sender: FDA-Public Use
  Company Number: US-JNJFOC-20110306169

PATIENT
  Sex: Female
  Weight: 80.74 kg

DRUGS (11)
  1. FENTANYL-100 [Suspect]
     Dosage: 100UG/HR+50UG/HR
     Route: 062
  2. MORPHINE [Concomitant]
     Indication: PAIN
     Route: 048
  3. DURAGESIC-50 [Suspect]
     Indication: PRODUCT USED FOR UNKNOWN INDICATION
     Route: 062
  4. ACETAMINOPHEN [Suspect]
     Indication: PRODUCT USED FOR UNKNOWN INDICATION
     Route: 065
  5. DURAGESIC-50 [Suspect]
     Route: 062
  6. PERCOCET [Suspect]
     Indication: BACK PAIN
     Dosage: AS NEEDED
     Route: 048
  7. SOMA [Concomitant]
     Indication: MUSCLE RELAXANT THERAPY
     Route: 048
  8. FENTANYL-100 [Suspect]
     Indication: BACK PAIN
     Dosage: 100UG/HR+50UG/HR
     Route: 062
  9. DURAGESIC-50 [Suspect]
     Indication: BACK PAIN
     Dosage: 100UG/HR + 50UG/HR
     Route: 062
  10. ACETAMINOPHEN [Suspect]
     Route: 065
  11. ADVIL LIQUI-GELS [Concomitant]
     Indication: PAIN
     Dosage: AS NEEDED
     Route: 048

REACTIONS (4)
  - HEPATIC FAILURE [None]
  - TOXICITY TO VARIOUS AGENTS [None]
  - RASH MACULAR [None]
  - PRODUCT QUALITY ISSUE [None]
